FAERS Safety Report 9432748 (Version 2)
Quarter: 2013Q3

REPORT INFORMATION
  Report Type: Report from Study
  Country: JP (occurrence: JP)
  Receive Date: 20130731
  Receipt Date: 20130910
  Transmission Date: 20140515
  Serious: Yes (Hospitalization)
  Sender: FDA-Public Use
  Company Number: JP-SANOFI-AVENTIS-2012SA069233

PATIENT
  Age: 86 Year
  Sex: Female
  Weight: 35 kg

DRUGS (15)
  1. PLAVIX [Suspect]
     Indication: ACUTE MYOCARDIAL INFARCTION
     Route: 048
     Dates: start: 20120603, end: 20120603
  2. PLAVIX [Suspect]
     Indication: ACUTE MYOCARDIAL INFARCTION
     Route: 048
     Dates: start: 20120604, end: 20120820
  3. ASPIRIN [Concomitant]
     Indication: ACUTE MYOCARDIAL INFARCTION
     Route: 048
     Dates: start: 20120603, end: 20120603
  4. ASPIRIN [Concomitant]
     Indication: ACUTE MYOCARDIAL INFARCTION
     Route: 048
     Dates: start: 20120604
  5. HEPARIN [Concomitant]
     Indication: ACUTE MYOCARDIAL INFARCTION
     Dosage: DOSE:5000 UNIT(S)
     Route: 041
     Dates: start: 20120603, end: 20120605
  6. LANSOPRAZOLE [Concomitant]
     Indication: PROPHYLAXIS
     Route: 048
     Dates: start: 20120604
  7. ROSUVASTATIN [Concomitant]
     Route: 048
     Dates: start: 20120604
  8. NICORANDIL [Concomitant]
     Indication: ACUTE MYOCARDIAL INFARCTION
     Route: 048
     Dates: start: 20120605
  9. NU-LOTAN [Concomitant]
     Indication: ACUTE MYOCARDIAL INFARCTION
     Route: 048
     Dates: start: 20120608, end: 20120615
  10. NU-LOTAN [Concomitant]
     Indication: ACUTE MYOCARDIAL INFARCTION
     Route: 048
     Dates: start: 20120616, end: 20120720
  11. ARTIST [Concomitant]
     Indication: ACUTE MYOCARDIAL INFARCTION
     Route: 048
     Dates: start: 20120609, end: 20120615
  12. MAGNESIUM OXIDE [Concomitant]
     Route: 048
     Dates: start: 20120607
  13. SENNOSIDE A [Concomitant]
     Route: 048
     Dates: start: 20120607, end: 20121225
  14. PLETAAL [Concomitant]
     Route: 048
     Dates: start: 20120617, end: 20120619
  15. DIART [Concomitant]
     Indication: ACUTE MYOCARDIAL INFARCTION
     Route: 048
     Dates: start: 20120721, end: 20121122

REACTIONS (2)
  - Thrombosis in device [Recovering/Resolving]
  - Ventricular tachycardia [Recovering/Resolving]
